FAERS Safety Report 12678219 (Version 1)
Quarter: 2016Q3

REPORT INFORMATION
  Report Type: Spontaneous
  Country: GT (occurrence: GT)
  Receive Date: 20160823
  Receipt Date: 20160823
  Transmission Date: 20161109
  Serious: Yes (Other)
  Sender: FDA-Public Use
  Company Number: GT-BAYER-2016-156936

PATIENT
  Age: 36 Year
  Sex: Female

DRUGS (1)
  1. MIRENA [Suspect]
     Active Substance: LEVONORGESTREL
     Indication: CONTRACEPTION
     Dosage: 20 MCG/24HR, CONT
     Route: 015
     Dates: start: 20160112, end: 20160730

REACTIONS (7)
  - Dyschezia [Unknown]
  - Uterine leiomyoma [None]
  - Genital haemorrhage [None]
  - Haematocolpos [Unknown]
  - Device expulsion [None]
  - Dysuria [Unknown]
  - Abdominal pain lower [None]

NARRATIVE: CASE EVENT DATE: 201605
